FAERS Safety Report 17140598 (Version 3)
Quarter: 2019Q4

REPORT INFORMATION
  Report Type: Spontaneous
  Country: UA (occurrence: UA)
  Receive Date: 20191211
  Receipt Date: 20191226
  Transmission Date: 20200122
  Serious: Yes (Other)
  Sender: FDA-Public Use
  Company Number: NVSC2019UA060488

PATIENT
  Age: 60 Year
  Sex: Female
  Weight: 84 kg

DRUGS (3)
  1. AZITHROMYCIN ANHYDROUS. [Suspect]
     Active Substance: AZITHROMYCIN ANHYDROUS
     Indication: BRONCHITIS CHRONIC
     Dosage: 500 MG, QD
     Route: 048
     Dates: start: 20191201, end: 20191202
  2. NOLPAZA [Concomitant]
     Active Substance: PANTOPRAZOLE SODIUM
     Indication: CHRONIC GASTRITIS
     Dosage: 40 MG, PERIODICALLY
     Route: 048
  3. LISINOPRIL. [Concomitant]
     Active Substance: LISINOPRIL
     Indication: HYPERTENSION
     Dosage: 5 MG, QD IN THE EVENING (FROM LONG TIME)
     Route: 048

REACTIONS (5)
  - Tremor [Recovered/Resolved]
  - Headache [Recovered/Resolved]
  - Pyelonephritis [Not Recovered/Not Resolved]
  - Renal pain [Not Recovered/Not Resolved]
  - Enuresis [Recovering/Resolving]

NARRATIVE: CASE EVENT DATE: 20191201
